FAERS Safety Report 7451120-9 (Version None)
Quarter: 2011Q2

REPORT INFORMATION
  Report Type: 
  Country: None (occurrence: None)
  Receive Date: 20110422
  Receipt Date: 20110308
  Transmission Date: 20111010
  Serious: Yes (Other)
  Sender: FDA-Public Use
  Company Number: 028991

PATIENT
  Sex: Male
  Weight: 9.1 kg

DRUGS (2)
  1. LACOSAMIDE [Suspect]
     Dosage: (150 MG BID, RECOMENDED WEAN HIM OF BREAST MILK TRANSMAMMARY)
     Route: 063
     Dates: start: 20100201
  2. LACOSAMIDE [Suspect]
     Indication: CONVULSION
     Dosage: (150 MG BID TRANSPLACENTAL)
     Route: 064
     Dates: start: 20091201, end: 20100218

REACTIONS (6)
  - CAESAREAN SECTION [None]
  - MATERNAL DRUGS AFFECTING FOETUS [None]
  - DEVELOPMENTAL DELAY [None]
  - SPEECH DISORDER DEVELOPMENTAL [None]
  - DRUG EXPOSURE VIA BREAST MILK [None]
  - EAR INFECTION [None]
